FAERS Safety Report 20129384 (Version 4)
Quarter: 2025Q1

REPORT INFORMATION
  Report Type: Report from Study
  Country: US (occurrence: US)
  Receive Date: 20211130
  Receipt Date: 20250325
  Transmission Date: 20250409
  Serious: No
  Sender: TAKEDA
  Company Number: US-TAKEDA-2021TUS073963

PATIENT
  Age: 49 Year
  Sex: Female

DRUGS (29)
  1. TEDUGLUTIDE [Suspect]
     Active Substance: TEDUGLUTIDE
     Indication: Short-bowel syndrome
     Dosage: 3.47 MILLIGRAM, QD
     Dates: start: 20140127
  2. TEDUGLUTIDE [Suspect]
     Active Substance: TEDUGLUTIDE
  3. TEDUGLUTIDE [Suspect]
     Active Substance: TEDUGLUTIDE
  4. TEDUGLUTIDE [Suspect]
     Active Substance: TEDUGLUTIDE
  5. XIFAXAN [Concomitant]
     Active Substance: RIFAXIMIN
     Indication: Lactic acidosis
     Dosage: 550 MILLIGRAM, BID
     Dates: start: 20211103, end: 20220208
  6. XIFAXAN [Concomitant]
     Active Substance: RIFAXIMIN
     Indication: Confusional state
     Dosage: 2 DOSAGE FORM, BID
     Dates: start: 20220209
  7. METRONIDAZOLE [Concomitant]
     Active Substance: METRONIDAZOLE
     Indication: Gastrointestinal microorganism overgrowth
     Dosage: 550 MILLIGRAM, TID
     Dates: start: 20210804
  8. METRONIDAZOLE [Concomitant]
     Active Substance: METRONIDAZOLE
     Indication: Lactic acidosis
  9. BACLOFEN [Concomitant]
     Active Substance: BACLOFEN
     Indication: Muscle spasms
  10. ZOLPIDEM TARTRATE [Concomitant]
     Active Substance: ZOLPIDEM TARTRATE
     Indication: Sedative therapy
  11. ASCORBIC ACID [Concomitant]
     Active Substance: ASCORBIC ACID
     Indication: Vitamin C
     Dosage: 2000.00 MILLIGRAM, QD
  12. CYANOCOBALAMIN [Concomitant]
     Active Substance: CYANOCOBALAMIN
     Indication: Vitamin B12
  13. ETONOGESTREL [Concomitant]
     Active Substance: ETONOGESTREL
     Indication: Prophylaxis
  14. ETONOGESTREL [Concomitant]
     Active Substance: ETONOGESTREL
     Indication: Vitamin D
  15. Linum usitatissimum [Concomitant]
     Indication: Fatty acid deficiency
  16. IBUPROFEN [Concomitant]
     Active Substance: IBUPROFEN
     Indication: Analgesic therapy
  17. LEVOTHYROXINE SODIUM [Concomitant]
     Active Substance: LEVOTHYROXINE SODIUM
     Indication: Hypothyroidism
     Dosage: 150.00 MICROGRAM
  18. LOPERAMIDE [Concomitant]
     Active Substance: LOPERAMIDE
     Indication: Diarrhoea
  19. MAGNESIUM OXIDE [Concomitant]
     Active Substance: MAGNESIUM OXIDE
     Indication: Blood magnesium decreased
     Dosage: 400.00 MILLIGRAM, BID
  20. METOPROLOL TARTRATE [Concomitant]
     Active Substance: METOPROLOL TARTRATE
     Indication: Hypertension
     Dosage: UNK, BID
  21. CREON [Concomitant]
     Active Substance: PANCRELIPASE AMYLASE\PANCRELIPASE LIPASE\PANCRELIPASE PROTEASE
     Indication: Dyspepsia
     Dosage: 3 INTERNATIONAL UNIT, TID
  22. WARFARIN SODIUM [Concomitant]
     Active Substance: WARFARIN SODIUM
     Indication: Thrombosis
     Dosage: 7 MILLIGRAM, QD
  23. AMBIEN [Concomitant]
     Active Substance: ZOLPIDEM TARTRATE
     Indication: Insomnia
  24. ROBAXIN [Concomitant]
     Active Substance: METHOCARBAMOL
     Indication: Muscle spasms
     Dosage: 1 DOSAGE FORM, TID
     Dates: start: 20190623
  25. CALCIUM CITRATE [Concomitant]
     Active Substance: CALCIUM CITRATE
     Indication: Nephrolithiasis
     Dosage: UNK UNK, QD
     Dates: start: 20140128
  26. POTASSIUM CITRATE [Concomitant]
     Active Substance: POTASSIUM CITRATE
     Indication: Nephrolithiasis
     Dosage: UNK UNK, BID
     Dates: start: 20190623
  27. HYDROXYCHLOROQUINE [Concomitant]
     Active Substance: HYDROXYCHLOROQUINE
     Indication: Antiphospholipid syndrome
     Dosage: 200 MILLIGRAM, BID
     Dates: start: 20211221
  28. PREDNISONE [Concomitant]
     Active Substance: PREDNISONE
     Indication: Arthritis
  29. NITROGLYCERIN [Concomitant]
     Active Substance: NITROGLYCERIN
     Indication: Raynaud^s phenomenon
     Route: 061

REACTIONS (1)
  - Colorectal adenoma [Recovered/Resolved]

NARRATIVE: CASE EVENT DATE: 20200219
